FAERS Safety Report 4950827-2 (Version None)
Quarter: 2006Q1

REPORT INFORMATION
  Report Type: 
  Country: None (occurrence: None)
  Receive Date: 20060322
  Receipt Date: 20060310
  Transmission Date: 20060701
  Serious: Yes (Death)
  Sender: FDA-Public Use
  Company Number: RU-SANOFI-SYNTHELABO-A01200601883

PATIENT
  Age: 20 Year
  Sex: Female
  Weight: 50 kg

DRUGS (6)
  1. LOKREN [Suspect]
     Indication: SINUS TACHYCARDIA
     Route: 048
     Dates: start: 20060208, end: 20060215
  2. DEXAMETHASONE TAB [Concomitant]
     Indication: ASTHMA
     Dosage: 4 MG
     Route: 042
     Dates: start: 20060206, end: 20060214
  3. AMITRIPTYLINE HCL [Concomitant]
     Indication: DEPRESSION
     Dosage: 0.5 UNIT
     Route: 048
     Dates: start: 20060203, end: 20060214
  4. SIMBICORT [Concomitant]
     Indication: ASTHMA
     Dosage: 1 UNK
     Route: 055
     Dates: start: 20060201
  5. SPARCAM [Concomitant]
     Indication: DRUG USE FOR UNKNOWN INDICATION
     Dosage: 3 UNIT
     Route: 048
     Dates: start: 20060201
  6. THYMUSAMIN [Concomitant]
     Indication: SECONDARY IMMUNODEFICIENCY
     Dosage: 3 UNK
     Route: 030
     Dates: start: 20060206

REACTIONS (5)
  - ATRIOVENTRICULAR BLOCK COMPLETE [None]
  - CARDIAC FAILURE ACUTE [None]
  - PULMONARY OEDEMA [None]
  - SINUS ARREST [None]
  - VENTRICULAR ARRHYTHMIA [None]
